FAERS Safety Report 17303059 (Version 1)
Quarter: 2020Q1

REPORT INFORMATION
  Report Type: Spontaneous
  Country: US (occurrence: US)
  Receive Date: 20200122
  Receipt Date: 20200122
  Transmission Date: 20200409
  Serious: Yes (Other)
  Sender: FDA-Public Use
  Company Number: US-NAPPMUNDI-GBR-2020-0074386

PATIENT

DRUGS (1)
  1. POVIDONE-IODINE. [Suspect]
     Active Substance: POVIDONE-IODINE
     Indication: PRODUCT USED FOR UNKNOWN INDICATION
     Dosage: UNK (STRENGTH 5%) (AT THE BEGINNING AND END OF PROCEDURE)
     Route: 061

REACTIONS (3)
  - Nausea [Unknown]
  - Eye abscess [Recovered/Resolved]
  - Vomiting [Unknown]
